FAERS Safety Report 8515504-X (Version None)
Quarter: 2012Q3

REPORT INFORMATION
  Report Type: 
  Country: None (occurrence: None)
  Receive Date: 20120717
  Receipt Date: 20120712
  Transmission Date: 20120928
  Serious: Yes (Death, Hospitalization, Other)
  Sender: FDA-Public Use
  Company Number: US-CELGENEUS-163-21880-12021991

PATIENT
  Sex: Female

DRUGS (17)
  1. ASPIRIN [Concomitant]
     Route: 065
  2. CARTIA XT [Concomitant]
     Route: 065
  3. FUROSEMIDE [Concomitant]
     Route: 065
  4. DEXAMETHASONE [Concomitant]
     Route: 065
  5. FENOFIBRATE [Concomitant]
     Route: 065
  6. VITAMIN E [Concomitant]
     Route: 065
  7. CARVEDILOL [Concomitant]
     Route: 065
  8. VICODIN [Concomitant]
     Route: 065
  9. VITAMIN D [Concomitant]
     Route: 065
  10. REVLIMID [Suspect]
     Indication: MULTIPLE MYELOMA
     Dosage: 2.5 MILLIGRAM
     Route: 048
     Dates: start: 20110912
  11. REVLIMID [Suspect]
     Dosage: 1.4286 MILLIGRAM
     Route: 048
     Dates: start: 20120201, end: 20120423
  12. ALLOPURINOL [Concomitant]
     Route: 065
  13. DIOVAN [Concomitant]
     Route: 065
  14. GABAPENTIN [Concomitant]
     Route: 065
  15. TERAZOSIN HCL [Concomitant]
     Route: 065
  16. VYTORIN [Concomitant]
     Route: 065
  17. HUMALOG [Concomitant]
     Route: 065

REACTIONS (5)
  - HAEMOGLOBIN DECREASED [None]
  - PLATELET COUNT DECREASED [None]
  - CARDIAC FAILURE CONGESTIVE [None]
  - ATRIAL FIBRILLATION [None]
  - RENAL FAILURE [None]
